FAERS Safety Report 6026787-2 (Version None)
Quarter: 2009Q1

REPORT INFORMATION
  Report Type: 
  Country: None (occurrence: None)
  Receive Date: 20090105
  Receipt Date: 20081230
  Transmission Date: 20090719
  Serious: No
  Sender: FDA-Public Use
  Company Number: US-JNJFOC-20090100102

PATIENT
  Sex: Female
  Weight: 99.79 kg

DRUGS (5)
  1. DURAGESIC-100 [Suspect]
     Route: 062
  2. DURAGESIC-100 [Suspect]
     Indication: PAIN
     Route: 062
  3. PROZAC [Concomitant]
     Indication: ANXIETY
     Route: 048
  4. PROZAC [Concomitant]
     Indication: DEPRESSION
     Dosage: 20 MG + 40 MG
     Route: 048
  5. LAMICTAL [Concomitant]
     Indication: DEPRESSION
     Dosage: ONE/TWO TIMES PER DAY
     Route: 048

REACTIONS (7)
  - ARTHRALGIA [None]
  - EYELID OEDEMA [None]
  - INFLUENZA LIKE ILLNESS [None]
  - MYALGIA [None]
  - OEDEMA PERIPHERAL [None]
  - PAIN [None]
  - TREATMENT NONCOMPLIANCE [None]
